FAERS Safety Report 13805359 (Version 1)
Quarter: 2017Q3

REPORT INFORMATION
  Report Type: Spontaneous
  Country: GB (occurrence: GB)
  Receive Date: 20170728
  Receipt Date: 20170728
  Transmission Date: 20171127
  Serious: Yes (Other)
  Sender: FDA-Public Use
  Company Number: GB-TORRENT-00015449

PATIENT
  Age: 47 Year
  Sex: Male
  Weight: 111 kg

DRUGS (7)
  1. BISOPROLOL [Concomitant]
     Active Substance: BISOPROLOL
  2. RAMIPRIL. [Concomitant]
     Active Substance: RAMIPRIL
  3. OLANZAPINE. [Suspect]
     Active Substance: OLANZAPINE
  4. TICAGRELOR. [Concomitant]
     Active Substance: TICAGRELOR
  5. CLOZAPINE. [Suspect]
     Active Substance: CLOZAPINE
  6. ASPIRIN. [Concomitant]
     Active Substance: ASPIRIN
  7. RANITIDINE. [Concomitant]
     Active Substance: RANITIDINE

REACTIONS (4)
  - Myocardial infarction [Unknown]
  - Psychotic disorder [Unknown]
  - Weight increased [Unknown]
  - Chest pain [Unknown]
